FAERS Safety Report 25687621 (Version 1)
Quarter: 2025Q3

REPORT INFORMATION
  Report Type: Spontaneous
  Country: GB (occurrence: GB)
  Receive Date: 20250817
  Receipt Date: 20250817
  Transmission Date: 20251020
  Serious: Yes (Other)
  Sender: DEXCEL LTD.
  Company Number: None

PATIENT
  Age: 82 Year
  Sex: Female
  Weight: 83 kg

DRUGS (5)
  1. OMEPRAZOLE [Suspect]
     Active Substance: OMEPRAZOLE
     Route: 048
     Dates: start: 20250305, end: 20250508
  2. BECLOMETHASONE\FORMOTEROL [Concomitant]
     Active Substance: BECLOMETHASONE\FORMOTEROL
     Dates: start: 20250225
  3. AMOXICILLIN [Concomitant]
     Active Substance: AMOXICILLIN
     Dosage: FOR 5 DAYS
     Route: 048
     Dates: start: 20250225, end: 20250326
  4. PREDNISOLONE [Concomitant]
     Active Substance: PREDNISOLONE
     Dosage: EACH MORNING FOR 5 DAYS
     Route: 048
     Dates: start: 20250225, end: 20250326
  5. LANSOPRAZOLE [Concomitant]
     Active Substance: LANSOPRAZOLE
     Dosage: EACH MORNING
     Route: 048
     Dates: start: 20250508

REACTIONS (1)
  - Muscle spasms [Recovered/Resolved]
